FAERS Safety Report 8286452 (Version 3)
Quarter: 2013Q2

REPORT INFORMATION
  Report Type: Spontaneous
  Country: US (occurrence: US)
  Receive Date: 20111122
  Receipt Date: 20120703
  Transmission Date: 20140414
  Serious: Yes (Other)
  Sender: FDA-Public Use
  Company Number: PHHY2011US66735

PATIENT
  Age: 44 Year
  Sex: Female

DRUGS (17)
  1. GILENYA (FTY) CAPSULE [Suspect]
     Indication: MULTIPLE SCLEROSIS
     Dosage: 0.5 MG, QD
     Route: 048
     Dates: start: 20110314
  2. CELLCEPT [Concomitant]
     Indication: MULTIPLE SCLEROSIS
     Dosage: UNK UKN, UNK
     Dates: end: 20110213
  3. SOLU-MEDROL [Concomitant]
     Indication: MULTIPLE SCLEROSIS
     Dosage: UNK UKN, UNK
     Dates: start: 201102
  4. MULTIVITAMINS [Concomitant]
     Dosage: 1 DF, QD
     Route: 048
  5. MONTELUKAST [Concomitant]
     Dosage: 10 MG, QHS
     Route: 048
  6. ALEVE [Concomitant]
     Dosage: UNK UKN, PRN
     Route: 048
  7. PREGABALIN [Concomitant]
     Dosage: 100 MG, TID
     Route: 048
  8. TIZANIDINE [Concomitant]
     Dosage: 3 DF, TID
     Route: 048
  9. MOMETASONE [Concomitant]
     Dosage: SPAY IN AFFECTED NOSTRIL, QD
  10. ARMODAFINIL [Concomitant]
     Dosage: 1 DF, QD
     Route: 048
  11. FLUOXETINE [Concomitant]
     Dosage: 1 DF, QD
  12. FUROSEMIDE [Concomitant]
     Dosage: 1 DF, PRN
  13. POTASSIUM CHLORIDE [Concomitant]
     Dosage: 1 DF, PRN
     Route: 048
  14. SYNTHROID [Concomitant]
     Dosage: 1 DF, QD
  15. ERGOCALCIFEROL [Concomitant]
     Dosage: 1 DF, QW
  16. LEVETIRACETAM [Concomitant]
     Dosage: 500 MG, UNK
     Route: 048
  17. PROZAC [Concomitant]

REACTIONS (5)
  - Leukopenia [Unknown]
  - Haemoglobin decreased [Unknown]
  - Mean cell haemoglobin concentration decreased [Unknown]
  - Liver function test abnormal [None]
  - White blood cell count decreased [None]
